FAERS Safety Report 9552257 (Version 2)
Quarter: 2013Q4

REPORT INFORMATION
  Report Type: Spontaneous
  Country: AR (occurrence: AR)
  Receive Date: 20130925
  Receipt Date: 20131023
  Transmission Date: 20140711
  Serious: Yes (Other)
  Sender: FDA-Public Use
  Company Number: AR-INCYTE CORPORATION-2013IN002127

PATIENT
  Age: 65 Year
  Sex: 0

DRUGS (4)
  1. JAKAVI [Suspect]
     Dosage: 15 MG, EVERY 12 HOURS
     Route: 065
     Dates: start: 20130830
  2. JAKAVI [Suspect]
     Dosage: 5 MG, EVERY 12 HOURS
     Route: 065
  3. JAKAVI [Suspect]
     Dosage: 15 MG, EVERY 12 HOURS
     Route: 065
  4. HYDROXYUREA [Concomitant]

REACTIONS (3)
  - Vomiting [Unknown]
  - Headache [Recovering/Resolving]
  - Anaemia [Unknown]
